FAERS Safety Report 16575770 (Version 1)
Quarter: 2019Q3

REPORT INFORMATION
  Report Type: Report from Study
  Country: AR (occurrence: AR)
  Receive Date: 20190716
  Receipt Date: 20190716
  Transmission Date: 20191004
  Serious: Yes (Other)
  Sender: FDA-Public Use
  Company Number: AR-EMD SERONO-9104271

PATIENT
  Age: 39 Year
  Sex: Male

DRUGS (1)
  1. REBIF [Suspect]
     Active Substance: INTERFERON BETA-1A
     Indication: MULTIPLE SCLEROSIS
     Route: 058
     Dates: start: 20170911, end: 2019

REACTIONS (7)
  - Erythema [Unknown]
  - Hypokinesia [Recovering/Resolving]
  - Pain [Recovered/Resolved]
  - Abdominal pain [Unknown]
  - Contusion [Unknown]
  - Abdominal infection [Unknown]
  - Skin induration [Unknown]

NARRATIVE: CASE EVENT DATE: 201905
